FAERS Safety Report 15238930 (Version 5)
Quarter: 2020Q3

REPORT INFORMATION
  Report Type: Spontaneous
  Country: US (occurrence: US)
  Receive Date: 20180803
  Receipt Date: 20200902
  Transmission Date: 20201102
  Serious: Yes (Other)
  Sender: FDA-Public Use
  Company Number: US-TEVA-2018-US-934732

PATIENT
  Age: 56 Year
  Sex: Female

DRUGS (1)
  1. PROAIR HFA [Suspect]
     Active Substance: ALBUTEROL SULFATE
     Route: 055

REACTIONS (7)
  - Pneumonia [Unknown]
  - Therapy interrupted [Unknown]
  - Chest injury [Unknown]
  - Dyspnoea [Unknown]
  - Emotional disorder [Unknown]
  - Housebound [Unknown]
  - Gait disturbance [Unknown]
